FAERS Safety Report 8085968-7 (Version None)
Quarter: 2012Q1

REPORT INFORMATION
  Report Type: 
  Country: None (occurrence: None)
  Receive Date: 20120128
  Receipt Date: 20110506
  Transmission Date: 20120608
  Serious: No
  Sender: FDA-Public Use
  Company Number: US-ABBOTT-11P-163-0723719-00

PATIENT
  Sex: Female
  Weight: 52.21 kg

DRUGS (8)
  1. FIORICET [Concomitant]
     Indication: MIGRAINE
  2. AMITRIPTYLINE HCL [Concomitant]
     Indication: HEADACHE
  3. ZOLOFT [Concomitant]
     Indication: HEADACHE
  4. PRILOSEC [Concomitant]
     Indication: GASTRIC DISORDER
  5. PRILOSEC [Concomitant]
     Indication: PROPHYLAXIS
  6. TOPAMAX [Concomitant]
     Indication: MIGRAINE
  7. INDOCIN [Concomitant]
     Indication: RHEUMATOID ARTHRITIS
  8. HUMIRA [Suspect]
     Indication: RHEUMATOID ARTHRITIS
     Dosage: NOT REPORT

REACTIONS (1)
  - UPPER RESPIRATORY TRACT INFECTION [None]
